FAERS Safety Report 6733561-8 (Version None)
Quarter: 2010Q2

REPORT INFORMATION
  Report Type: 
  Country: None (occurrence: None)
  Receive Date: 20100520
  Receipt Date: 20100512
  Transmission Date: 20101027
  Serious: Yes (Hospitalization)
  Sender: FDA-Public Use
  Company Number: ES-ASTRAZENECA-2010SE21607

PATIENT
  Age: 51 Year
  Sex: Female

DRUGS (3)
  1. ARIMIDEX [Suspect]
     Indication: BREAST CANCER
     Route: 048
     Dates: start: 20080501, end: 20091105
  2. DIAMBEN [Concomitant]
     Route: 048
  3. VALSARTAN [Concomitant]
     Route: 048

REACTIONS (1)
  - ANAEMIA MACROCYTIC [None]
